FAERS Safety Report 11124845 (Version 1)
Quarter: 2015Q2

REPORT INFORMATION
  Report Type: Spontaneous
  Country: US (occurrence: None)
  Receive Date: 20150519
  Receipt Date: 20150519
  Transmission Date: 20150821
  Serious: Yes (Hospitalization)
  Sender: FDA-Public Use
  Company Number: None

PATIENT
  Age: 27 Year
  Sex: Female
  Weight: 83.9 kg

DRUGS (1)
  1. SULFAMETHOXAZOLE/TRIMETHOPRIM [Suspect]
     Active Substance: SULFAMETHOXAZOLE\TRIMETHOPRIM
     Indication: PNEUMOCYSTIS JIROVECII PNEUMONIA
     Dosage: 3 TABLETS TID ORAL
     Route: 048
     Dates: start: 20141013, end: 20141016

REACTIONS (6)
  - Haemoglobin decreased [None]
  - Rash erythematous [None]
  - Haemolytic anaemia [None]
  - Pruritus [None]
  - Haematemesis [None]
  - Pyrexia [None]

NARRATIVE: CASE EVENT DATE: 20141016
